FAERS Safety Report 25638308 (Version 1)
Quarter: 2025Q3

REPORT INFORMATION
  Report Type: Spontaneous
  Country: US (occurrence: None)
  Receive Date: 20250801
  Receipt Date: 20250801
  Transmission Date: 20251021
  Serious: No
  Sender: FDA-CTU
  Company Number: None

PATIENT
  Age: 78 Year
  Sex: Female

DRUGS (1)
  1. OTEZLA [Suspect]
     Active Substance: APREMILAST
     Indication: Psoriasis
     Dosage: TAKE 1 TABLET BY MOUTH TWICE  DAILY AS DIRECTED.    ?
     Route: 048
     Dates: start: 202307

REACTIONS (1)
  - Cerebrovascular accident [None]
